FAERS Safety Report 25012666 (Version 1)
Quarter: 2025Q1

REPORT INFORMATION
  Report Type: Spontaneous
  Country: US (occurrence: None)
  Receive Date: 20250225
  Receipt Date: 20250225
  Transmission Date: 20250409
  Serious: Yes (Death, Hospitalization)
  Sender: FDA-CTU
  Company Number: None

PATIENT
  Age: 4 Year
  Sex: Male

DRUGS (6)
  1. AMBRISENTAN [Suspect]
     Active Substance: AMBRISENTAN
  2. TADALAFIL [Suspect]
     Active Substance: TADALAFIL
  3. SELEXIPAG [Suspect]
     Active Substance: SELEXIPAG
  4. TAMIFLU [Concomitant]
     Active Substance: OSELTAMIVIR PHOSPHATE
  5. NEXIUM [Concomitant]
     Active Substance: ESOMEPRAZOLE MAGNESIUM
  6. AMOXICILLIN [Concomitant]
     Active Substance: AMOXICILLIN

REACTIONS (10)
  - Rhinorrhoea [None]
  - Cough [None]
  - Pyrexia [None]
  - Respiratory tract congestion [None]
  - Oxygen consumption increased [None]
  - Acute respiratory failure [None]
  - Metapneumovirus infection [None]
  - Pulmonary hypertension [None]
  - Bradycardia [None]
  - Cardiac arrest [None]

NARRATIVE: CASE EVENT DATE: 20250126
